FAERS Safety Report 8422820-9 (Version None)
Quarter: 2012Q2

REPORT INFORMATION
  Report Type: 
  Country: None (occurrence: None)
  Receive Date: 20120608
  Receipt Date: 20120531
  Transmission Date: 20120825
  Serious: Yes (Hospitalization, Disabling, Other)
  Sender: FDA-Public Use
  Company Number: US-MERCK-1110USA04119

PATIENT
  Age: 55 Year
  Sex: Female
  Weight: 57 kg

DRUGS (29)
  1. FOSAMAX [Suspect]
     Route: 048
     Dates: start: 20010101
  2. FOSAMAX PLUS D [Suspect]
     Route: 048
     Dates: start: 20080201, end: 20081101
  3. PREMARIN [Concomitant]
     Route: 065
  4. FOSAMAX [Suspect]
     Indication: OSTEOPOROSIS
     Route: 048
     Dates: start: 19970101, end: 20010201
  5. VITAMINS (UNSPECIFIED) [Concomitant]
     Route: 065
     Dates: start: 19700101
  6. HORMONES (UNSPECIFIED) [Concomitant]
     Route: 065
     Dates: start: 19860101, end: 20110101
  7. ALENDRONATE SODIUM [Suspect]
     Route: 065
     Dates: start: 20090213
  8. ALENDRONATE SODIUM [Suspect]
     Route: 065
     Dates: start: 20090213
  9. PREMPRO [Concomitant]
     Indication: OSTEOPOROSIS
     Route: 065
  10. FOSAMAX PLUS D [Suspect]
     Route: 048
     Dates: start: 20080101, end: 20090101
  11. FOSAMAX [Suspect]
     Route: 048
     Dates: start: 20090101, end: 20100101
  12. ALENDRONATE SODIUM [Suspect]
     Indication: OSTEOPENIA
     Route: 048
     Dates: start: 20090601, end: 20091201
  13. ACETAMINOPHEN [Concomitant]
     Route: 065
  14. NORTRIPTYLINE [Concomitant]
     Route: 065
  15. VITAMIN D (UNSPECIFIED) [Concomitant]
     Route: 065
  16. CHOLECALCIFEROL [Concomitant]
     Indication: OSTEOPOROSIS
     Route: 065
     Dates: start: 19970101
  17. FOSAMAX [Suspect]
     Indication: OSTEOPENIA
     Route: 048
     Dates: start: 19970101, end: 20010201
  18. FOSAMAX PLUS D [Suspect]
     Route: 048
     Dates: start: 20080201, end: 20081101
  19. FOSAMAX PLUS D [Suspect]
     Indication: OSTEOPENIA
     Route: 048
     Dates: start: 20060101, end: 20080101
  20. FOSAMAX [Suspect]
     Route: 048
     Dates: start: 20090101, end: 20100101
  21. PERCOCET [Concomitant]
     Route: 065
  22. FOSAMAX [Suspect]
     Route: 048
     Dates: start: 20010101
  23. CALCIUM (UNSPECIFIED) AND VITAMIN D (UNSPECIFIED) [Concomitant]
     Indication: OSTEOPOROSIS
     Route: 065
     Dates: start: 19970101
  24. ALENDRONATE SODIUM [Suspect]
     Indication: OSTEOPOROSIS
     Route: 048
     Dates: start: 20090601, end: 20091201
  25. ULTRAM [Concomitant]
     Route: 065
  26. BONIVA [Suspect]
     Indication: OSTEOPOROSIS
     Route: 048
     Dates: start: 20050901, end: 20060101
  27. FOSAMAX PLUS D [Suspect]
     Indication: OSTEOPOROSIS
     Route: 048
     Dates: start: 20060101, end: 20080101
  28. FOSAMAX PLUS D [Suspect]
     Route: 048
     Dates: start: 20080101, end: 20090101
  29. CALCIUM (UNSPECIFIED) [Concomitant]
     Indication: OSTEOPOROSIS
     Route: 065

REACTIONS (75)
  - UPPER RESPIRATORY TRACT INFECTION [None]
  - PAIN IN EXTREMITY [None]
  - PIRIFORMIS SYNDROME [None]
  - BLOOD POTASSIUM ABNORMAL [None]
  - ANXIETY [None]
  - BREAST CANCER STAGE I [None]
  - UTERINE DISORDER [None]
  - CONDITION AGGRAVATED [None]
  - INTERVERTEBRAL DISC DEGENERATION [None]
  - FRACTURE [None]
  - MICTURITION URGENCY [None]
  - UNDERWEIGHT [None]
  - JOINT SWELLING [None]
  - SINUSITIS [None]
  - SCAR [None]
  - ROTATOR CUFF SYNDROME [None]
  - JOINT INJURY [None]
  - ARTHROPATHY [None]
  - BONE FRAGMENTATION [None]
  - OSTEONECROSIS [None]
  - OSTEOARTHRITIS [None]
  - FALLOPIAN TUBE DISORDER [None]
  - LOW TURNOVER OSTEOPATHY [None]
  - ACUTE SINUSITIS [None]
  - DYSLIPIDAEMIA [None]
  - GASTROOESOPHAGEAL REFLUX DISEASE [None]
  - URINARY INCONTINENCE [None]
  - POLYMYALGIA RHEUMATICA [None]
  - FALL [None]
  - EAR PAIN [None]
  - ASTHMA [None]
  - FEMUR FRACTURE [None]
  - DRUG INEFFECTIVE [None]
  - GASTRIC DISORDER [None]
  - MALAISE [None]
  - MIGRAINE [None]
  - DYSPEPSIA [None]
  - CONTUSION [None]
  - HEADACHE [None]
  - URINARY TRACT INFECTION [None]
  - MONOCLONAL IMMUNOGLOBULIN PRESENT [None]
  - JOINT DISLOCATION [None]
  - DEPRESSION [None]
  - DECREASED APPETITE [None]
  - HAND FRACTURE [None]
  - FOOT FRACTURE [None]
  - HYPERTONIC BLADDER [None]
  - SPINAL OSTEOARTHRITIS [None]
  - TONSILLAR DISORDER [None]
  - UTERINE CERVIX STENOSIS [None]
  - CALCIUM IONISED [None]
  - HYPOPHOSPHATASIA [None]
  - JOINT EFFUSION [None]
  - DYSMENORRHOEA [None]
  - BIPOLAR DISORDER [None]
  - BONE METABOLISM DISORDER [None]
  - STAPHYLOCOCCAL INFECTION [None]
  - UTERINE SPASM [None]
  - OEDEMA PERIPHERAL [None]
  - HYPOKALAEMIA [None]
  - FATIGUE [None]
  - ANAEMIA POSTOPERATIVE [None]
  - ADVERSE DRUG REACTION [None]
  - BONE DISORDER [None]
  - GAIT DISTURBANCE [None]
  - TOOTH INFECTION [None]
  - URETHRAL STENOSIS [None]
  - SCIATICA [None]
  - ARTHRALGIA [None]
  - FAECES HARD [None]
  - BLADDER DISORDER [None]
  - OESTROGEN DEFICIENCY [None]
  - VAGINAL DISORDER [None]
  - TOOTH DISORDER [None]
  - SWELLING FACE [None]
